FAERS Safety Report 7940934-4 (Version None)
Quarter: 2011Q4

REPORT INFORMATION
  Report Type: 
  Country: None (occurrence: None)
  Receive Date: 20111128
  Receipt Date: 20111115
  Transmission Date: 20120403
  Serious: Yes (Hospitalization, Other)
  Sender: FDA-Public Use
  Company Number: DE-ELI_LILLY_AND_COMPANY-DE201109003833

PATIENT
  Age: 76 Year
  Sex: Male
  Weight: 60 kg

DRUGS (2)
  1. FORTEO [Suspect]
     Indication: OSTEOPOROSIS
     Dosage: UNK, QD
     Route: 058
     Dates: start: 20100517, end: 20110901
  2. DEKRISTOL [Concomitant]
     Dosage: UNK, 3/W

REACTIONS (3)
  - MICROCYTIC ANAEMIA [None]
  - SPLENOMEGALY [None]
  - MYELOFIBROSIS [None]
